FAERS Safety Report 21260948 (Version 7)
Quarter: 2023Q1

REPORT INFORMATION
  Report Type: Spontaneous
  Country: IN (occurrence: IN)
  Receive Date: 20220826
  Receipt Date: 20230227
  Transmission Date: 20230418
  Serious: Yes (Death, Other)
  Sender: FDA-Public Use
  Company Number: IN-PFIZER INC-2021814694

PATIENT
  Age: 41 Year
  Sex: Female

DRUGS (12)
  1. PALBOCICLIB [Suspect]
     Active Substance: PALBOCICLIB
     Indication: Breast cancer metastatic
     Dosage: 125 MG, 1X/DAY
     Route: 048
     Dates: start: 20210510
  2. PALBOCICLIB [Suspect]
     Active Substance: PALBOCICLIB
     Dosage: 125 MG, CYCLIC (1-0-0, 3 WEEKS ON, 1 WEEK OFF)
     Route: 048
     Dates: start: 20210609
  3. PALBOCICLIB [Suspect]
     Active Substance: PALBOCICLIB
     Indication: Breast cancer metastatic
     Dosage: 125 MG, CYCLIC (3 WEEKS ON, 1 WEEK GAP)
     Route: 048
     Dates: start: 20210809
  4. PALBOCICLIB [Suspect]
     Active Substance: PALBOCICLIB
     Dosage: 125 MG, CYCLIC (1-0-0, 21DAYS)
     Route: 048
     Dates: start: 20210908
  5. PALBOCICLIB [Suspect]
     Active Substance: PALBOCICLIB
     Dosage: 125 MG, CYCLIC (3 WEEKS ON, 1 WEEK OFF)
     Route: 048
     Dates: start: 20211111
  6. PALBOCICLIB [Suspect]
     Active Substance: PALBOCICLIB
     Dosage: 125 MG, CYCLIC (2 WEEKS ON, 1 WEEK OFF)
     Route: 048
     Dates: start: 20211213
  7. PALBOCICLIB [Suspect]
     Active Substance: PALBOCICLIB
     Dosage: 75 MG, CYCLIC (1-0-0 X 21 DAYS ON 7 DAYS OFF)
     Route: 048
  8. SHELCAL [CALCIUM CARBONATE;COLECALCIFEROL] [Concomitant]
     Dosage: 500 MG, 2X/DAY (1-0-1, 1 MONTH)
     Route: 048
     Dates: start: 20210809
  9. SHELCAL [CALCIUM CARBONATE;COLECALCIFEROL] [Concomitant]
     Dosage: 500 MG, 2X/DAY (1-0-1, 1 MONTH)
     Route: 048
     Dates: start: 20211111
  10. SHELCAL [CALCIUM CARBONATE;COLECALCIFEROL] [Concomitant]
     Dosage: 500 MG, 2X/DAY (1-0-1)
     Route: 048
     Dates: start: 20211213
  11. EXEMESTANE [Concomitant]
     Active Substance: EXEMESTANE
     Dosage: 25 MG, 1X/DAY (1-0-0, TO CONTINUE)
     Route: 048
     Dates: start: 20210908
  12. EXEMESTANE [Concomitant]
     Active Substance: EXEMESTANE
     Dosage: 25 MG, 1X/DAY (1-0-0)
     Route: 048
     Dates: start: 20211213

REACTIONS (5)
  - Neoplasm progression [Fatal]
  - Pancytopenia [Unknown]
  - Off label use [Unknown]
  - Swelling face [Unknown]
  - Platelet count decreased [Unknown]
